FAERS Safety Report 17349319 (Version 2)
Quarter: 2023Q1

REPORT INFORMATION
  Report Type: Report from Study
  Country: US (occurrence: US)
  Receive Date: 20200130
  Receipt Date: 20230303
  Transmission Date: 20230418
  Serious: Yes (Other)
  Sender: FDA-Public Use
  Company Number: US-UCBSA-2019022685

PATIENT
  Sex: Female
  Weight: 74.83 kg

DRUGS (21)
  1. CERTOLIZUMAB PEGOL [Suspect]
     Active Substance: CERTOLIZUMAB PEGOL
     Indication: Rheumatoid arthritis
     Dosage: UNK
     Dates: start: 20160501, end: 20170501
  2. CERTOLIZUMAB PEGOL [Suspect]
     Active Substance: CERTOLIZUMAB PEGOL
     Indication: Psoriatic arthropathy
     Dosage: 400 MILLIGRAM, MONTHLY (QM)
     Route: 058
     Dates: start: 20190415, end: 20191212
  3. COSENTYX [Concomitant]
     Active Substance: SECUKINUMAB
     Indication: Psoriatic arthropathy
     Dosage: 1 TIME BEFORE CIMZIA
     Dates: start: 20160101, end: 20190401
  4. COSENTYX [Concomitant]
     Active Substance: SECUKINUMAB
     Dosage: 150 MILLIGRAM, MONTHLY (QM)
     Route: 058
     Dates: start: 20190312, end: 20190401
  5. ACETONE [Concomitant]
     Active Substance: ACETONE
     Indication: Product used for unknown indication
     Dosage: 2 HRS 4 DAY
     Dates: start: 20190312, end: 20191129
  6. ASPIRIN [Concomitant]
     Active Substance: ASPIRIN
     Indication: Infertility tests
     Dosage: 81 MILLIGRAM, ONCE DAILY (QD)
     Route: 048
     Dates: start: 20190312, end: 20190731
  7. BETAMETHASONE [Concomitant]
     Active Substance: BETAMETHASONE
     Indication: Psoriasis
     Dosage: EV 2 WEEKS(QOW)
     Route: 061
     Dates: start: 20190312, end: 20190830
  8. CAFFEINE [Concomitant]
     Active Substance: CAFFEINE
     Indication: Product used for unknown indication
     Dosage: 1 SERVING, EV 2 WEEKS(QOW)
     Route: 048
  9. FIBER LAXATIVE [Concomitant]
     Indication: Product used for unknown indication
     Dosage: 2 PILLS ONCE DAILY (QD)
     Route: 048
     Dates: start: 20191001, end: 20191212
  10. INFLUENZA VIRUS VACCINE [Concomitant]
     Active Substance: INFLUENZA VIRUS VACCINE
     Indication: Product used for unknown indication
     Dosage: 1 SHOT
     Route: 030
     Dates: start: 20191023, end: 20191023
  11. IRON [Concomitant]
     Active Substance: IRON
     Indication: Blood iron decreased
     Dosage: 2 PILL ONCE DAILY (QD)
     Route: 048
     Dates: start: 20191001, end: 20191212
  12. METFORMIN HYDROCHLORIDE [Concomitant]
     Active Substance: METFORMIN HYDROCHLORIDE
     Indication: Ovulation induction
     Dosage: 500 MILLIGRAM, ONCE DAILY (QD)
     Route: 048
     Dates: start: 20190201, end: 20190815
  13. LIQUOR AMMONII ANISATUS [Concomitant]
     Indication: Product used for unknown indication
     Dosage: 1 SERVING ONCE DAILY (QD)
     Route: 048
     Dates: start: 20190330, end: 20190330
  14. MINERALS\VITAMINS [Concomitant]
     Active Substance: MINERALS\VITAMINS
     Indication: Product used for unknown indication
     Dosage: 1 PILL ONCE DAILY (QD)
     Route: 048
     Dates: start: 20190201, end: 20191212
  15. PROGESTERONE [Concomitant]
     Active Substance: PROGESTERONE
     Indication: Infertility
     Dosage: 400 MILLIGRAM, ONCE DAILY (QD)
     Route: 048
     Dates: start: 20190409, end: 20190521
  16. ROBITUSSIN COLD [Concomitant]
     Indication: Nasopharyngitis
     Dosage: 20 MILLIGRAM 2.5 TOTL
     Route: 048
     Dates: start: 20190601, end: 20190608
  17. TETANUS TOXOID, REDUCED DIPHTHERIA TOXOID AND ACELLULAR PERTUSSIS VACC [Concomitant]
     Active Substance: TETANUS TOXOID, REDUCED DIPHTHERIA TOXOID AND ACELLULAR PERTUSSIS VACCINE ADSORBED, TDAP
     Indication: Product used for unknown indication
     Dosage: 1 SHOT
     Route: 030
     Dates: start: 20190715, end: 20190715
  18. TETANUS TOXOID, REDUCED DIPHTHERIA TOXOID AND ACELLULAR PERTUSSIS VACC [Concomitant]
     Active Substance: TETANUS TOXOID, REDUCED DIPHTHERIA TOXOID AND ACELLULAR PERTUSSIS VACCINE ADSORBED, TDAP
     Dosage: 1 SHOT
     Route: 030
     Dates: start: 20191023, end: 20191023
  19. TEA TREE [Concomitant]
     Active Substance: GLYCERIN
     Indication: Product used for unknown indication
     Dosage: 1 SERVING WEEKLY (QW)
     Route: 048
     Dates: start: 20190901, end: 20191212
  20. TEA TREE [Concomitant]
     Active Substance: GLYCERIN
     Dosage: 1 SERVING EV 2 WEEKS(QOW)
     Route: 048
     Dates: start: 20190312, end: 20190830
  21. VITAMIN D NOS [Concomitant]
     Active Substance: VITAMIN D NOS
     Indication: Product used for unknown indication
     Dosage: 2000 IU INTERNATIONAL UNIT(S), ONCE DAILY (QD)
     Route: 048
     Dates: start: 20190312, end: 20190902

REACTIONS (3)
  - Amniocentesis abnormal [Unknown]
  - Maternal exposure during pregnancy [Unknown]
  - Maternal exposure during breast feeding [Unknown]

NARRATIVE: CASE EVENT DATE: 20190101
